FAERS Safety Report 16431209 (Version 2)
Quarter: 2019Q3

REPORT INFORMATION
  Report Type: Spontaneous
  Country: NL (occurrence: NL)
  Receive Date: 20190614
  Receipt Date: 20190826
  Transmission Date: 20191004
  Serious: Yes (Other)
  Sender: FDA-Public Use
  Company Number: NL-MYLANLABS-2019M1055164

PATIENT
  Age: 82 Year
  Sex: Male

DRUGS (15)
  1. BETAHISTINE TEVA [Concomitant]
     Dosage: 3DD1
     Dates: start: 20180824
  2. EFUDIX [Concomitant]
     Active Substance: FLUOROURACIL
     Dosage: 2DD
     Dates: start: 20181015
  3. AMOXICILLINE SANDOZ [Concomitant]
     Active Substance: AMOXICILLIN
     Dosage: 3DD1
     Dates: start: 20190205
  4. NIZORAL [Concomitant]
     Active Substance: KETOCONAZOLE
     Dosage: 2DD
     Dates: start: 20180219
  5. NITROGLYCERINE [Concomitant]
     Active Substance: NITROGLYCERIN
     Dosage: ZO NODIG
     Dates: start: 20180107
  6. TEMAZEPAM. [Concomitant]
     Active Substance: TEMAZEPAM
     Dosage: 1DD1
     Dates: start: 20181015
  7. FLUCLOXACILLINE                    /00239101/ [Concomitant]
     Active Substance: FLUCLOXACILLIN
     Dosage: 4DD1
     Dates: start: 20190128
  8. ENALAPRIL MYLAN [Concomitant]
     Active Substance: ENALAPRIL
     Dosage: 1DD1
     Dates: start: 20180216
  9. BETAHISTINE ACCORD [Concomitant]
     Dosage: 3DD2
     Dates: start: 20180629
  10. PREDNISOLON SANDOZ [Concomitant]
     Dosage: 1DD3
     Dates: start: 20181018
  11. BETAHISTINE ACCORD [Concomitant]
     Dosage: 3DD2
     Dates: start: 20180629
  12. ARTELAC                            /00002701/ [Concomitant]
     Active Substance: ASPIRIN
     Dosage: 1-3DD1 DRUPPEL
     Dates: start: 20180507
  13. FOLIUMZUUR [Concomitant]
     Active Substance: FOLIC ACID
     Dosage: 1DD1
     Dates: start: 20180209
  14. OMEPRAZOLE. [Suspect]
     Active Substance: OMEPRAZOLE
     Indication: PRODUCT USED FOR UNKNOWN INDICATION
     Dosage: 1X PER DAG 1 CAPSULE
     Route: 048
     Dates: start: 20190208
  15. MIRTAZAPINE SANDOZ [Concomitant]
     Active Substance: MIRTAZAPINE
     Dosage: 1DD1
     Dates: start: 20171122

REACTIONS (1)
  - Inappropriate antidiuretic hormone secretion [Recovered/Resolved]

NARRATIVE: CASE EVENT DATE: 20190214
